FAERS Safety Report 9195847 (Version 1)
Quarter: 2013Q1

REPORT INFORMATION
  Report Type: Spontaneous
  Country: US (occurrence: None)
  Receive Date: 20130312
  Receipt Date: 20130312
  Transmission Date: 20140127
  Serious: No
  Sender: FDA-Public Use
  Company Number: 2011030616

PATIENT
  Sex: Female
  Weight: 79.38 kg

DRUGS (1)
  1. HIZENTRA (IMMUNOGLOBULIN HUMAN NORMAL) [Suspect]
     Indication: IMMUNODEFICIENCY COMMON VARIABLE
     Dosage: (10 G 1X/WEEK SUBCUTANEOUS)
     Route: 058
     Dates: start: 20100709

REACTIONS (3)
  - Glomerulonephritis [None]
  - Pigment nephropathy [None]
  - Renal failure chronic [None]
